FAERS Safety Report 7392243-2 (Version None)
Quarter: 2011Q2

REPORT INFORMATION
  Report Type: 
  Country: None (occurrence: None)
  Receive Date: 20110404
  Receipt Date: 20110323
  Transmission Date: 20111010
  Serious: Yes (Other)
  Sender: FDA-Public Use
  Company Number: US-MERCK-1103USA03101

PATIENT
  Age: 67 Year
  Sex: Female
  Weight: 76 kg

DRUGS (14)
  1. BUDESONIDE AND FORMOTEROL FUMARATE [Concomitant]
     Route: 065
  2. MULTAQ [Concomitant]
     Route: 065
  3. PLAVIX [Suspect]
     Indication: STENT PLACEMENT
     Route: 048
     Dates: start: 20100722, end: 20100805
  4. MICARDIS [Concomitant]
     Route: 065
  5. TIOTROPIUM BROMIDE [Concomitant]
     Route: 065
  6. ALBUTEROL [Concomitant]
     Route: 065
  7. LASIX [Concomitant]
     Route: 065
  8. ZOCOR [Suspect]
     Route: 048
  9. ASPIRIN [Concomitant]
     Route: 065
  10. DIGOXIN [Concomitant]
     Route: 065
  11. PRASUGREL HYDROCHLORIDE [Concomitant]
     Route: 065
  12. CARDIZEM [Concomitant]
     Route: 065
  13. BUMEX [Concomitant]
     Route: 065
  14. PULMICORT [Concomitant]
     Route: 065

REACTIONS (14)
  - MYALGIA [None]
  - JOINT SWELLING [None]
  - ARTHRALGIA [None]
  - SKIN SWELLING [None]
  - BONE PAIN [None]
  - PAIN [None]
  - MOBILITY DECREASED [None]
  - ARTHRITIS [None]
  - HYPERSENSITIVITY [None]
  - SWELLING [None]
  - RASH [None]
  - CARDIAC DISORDER [None]
  - PRURITUS [None]
  - OEDEMA PERIPHERAL [None]
